FAERS Safety Report 6785689-4 (Version None)
Quarter: 2010Q2

REPORT INFORMATION
  Report Type: 
  Country: None (occurrence: None)
  Receive Date: 20100621
  Receipt Date: 20100621
  Transmission Date: 20101027
  Serious: Yes (Hospitalization)
  Sender: FDA-Public Use
  Company Number: None

PATIENT
  Age: 84 Year
  Sex: Female
  Weight: 68 kg

DRUGS (9)
  1. ASPIRIN [Suspect]
     Dosage: 81MG DAILY PO  CHRONIC
     Route: 048
  2. PLAVIX [Suspect]
     Dosage: 75MG DAILY PO  CHRONIC
     Route: 048
  3. LEXAPRO [Concomitant]
  4. ZYRTEC [Concomitant]
  5. PERIDIN [Concomitant]
  6. CARVEDILOL [Concomitant]
  7. SEROQUEL [Concomitant]
  8. OMEPRAZOLE [Concomitant]
  9. MIRALAX [Concomitant]

REACTIONS (3)
  - DIVERTICULUM INTESTINAL [None]
  - HAEMORRHAGE [None]
  - RECTAL ULCER [None]
